FAERS Safety Report 13988195 (Version 2)
Quarter: 2017Q4

REPORT INFORMATION
  Report Type: Spontaneous
  Country: JP (occurrence: JP)
  Receive Date: 20170919
  Receipt Date: 20171026
  Transmission Date: 20180321
  Serious: Yes (Death, Other)
  Sender: FDA-Public Use
  Company Number: JP-BRISTOL-MYERS SQUIBB COMPANY-BMS-2017-068786

PATIENT
  Age: 85 Year
  Sex: Male

DRUGS (1)
  1. OPDIVO [Suspect]
     Active Substance: NIVOLUMAB
     Indication: RENAL CELL CARCINOMA
     Dosage: UNK
     Route: 041
     Dates: start: 20170616

REACTIONS (4)
  - Nephrotic syndrome [Not Recovered/Not Resolved]
  - Rash [Recovered/Resolved]
  - Gastric cancer [Fatal]
  - Pruritus [Unknown]

NARRATIVE: CASE EVENT DATE: 20170714
